FAERS Safety Report 7228387 (Version 2)
Quarter: 2013Q1

REPORT INFORMATION
  Report Type: Spontaneous
  Country: US (occurrence: None)
  Receive Date: 20091207
  Receipt Date: 20130131
  Transmission Date: 20140127
  Serious: Yes (Other)
  Sender: FDA-Public Use
  Company Number: JPI-P-009249

PATIENT
  Age: 59 Year
  Sex: Female

DRUGS (2)
  1. XYREM [Suspect]
     Indication: SLEEP DISORDER
     Dosage: 8 GM (4 GM, 2 IN 1 D) , ORAL, (10.5 GM FREQUENCY NOT REPORTED), ORAL 7 GM (3.5 GM, 2 IN 1 D), ORAL
     Route: 048
     Dates: start: 20041105, end: 2007
  2. ZOLPIDEM [Concomitant]

REACTIONS (7)
  - Nausea [None]
  - Tachycardia [None]
  - Gastrointestinal pain [None]
  - Feeling abnormal [None]
  - Sinus disorder [None]
  - Nasal disorder [None]
  - Dissociation [None]
